FAERS Safety Report 12986711 (Version 1)
Quarter: 2016Q4

REPORT INFORMATION
  Report Type: Spontaneous
  Country: GB (occurrence: GB)
  Receive Date: 20161130
  Receipt Date: 20161130
  Transmission Date: 20170207
  Serious: Yes (Hospitalization, Disabling, Other)
  Sender: FDA-Public Use
  Company Number: GB-PFIZER INC-2016551353

PATIENT
  Age: 37 Year
  Sex: Female
  Weight: 61.2 kg

DRUGS (1)
  1. DEPO-PROVERA [Suspect]
     Active Substance: MEDROXYPROGESTERONE ACETATE
     Indication: CONTRACEPTION
     Dosage: UNK
     Route: 051
     Dates: start: 19960110, end: 20131010

REACTIONS (11)
  - Osteopenia [Not Recovered/Not Resolved]
  - Vaginal haemorrhage [Not Recovered/Not Resolved]
  - Tenosynovitis [Not Recovered/Not Resolved]
  - Osteoarthritis [Not Recovered/Not Resolved]
  - Patellofemoral pain syndrome [Not Recovered/Not Resolved]
  - Incorrect drug administration duration [Unknown]
  - Breast cyst [Not Recovered/Not Resolved]
  - Osteomalacia [Not Recovered/Not Resolved]
  - Hydrometra [Not Recovered/Not Resolved]
  - Tendonitis [Not Recovered/Not Resolved]
  - Amenorrhoea [Unknown]

NARRATIVE: CASE EVENT DATE: 20120210
